FAERS Safety Report 18849729 (Version 1)
Quarter: 2021Q1

REPORT INFORMATION
  Report Type: Spontaneous
  Country: GB (occurrence: GB)
  Receive Date: 20210205
  Receipt Date: 20210205
  Transmission Date: 20210420
  Serious: Yes (Disabling)
  Sender: FDA-Public Use
  Company Number: GB-DRREDDYS-GER/UKI/21/0131705

PATIENT
  Age: 68 Year
  Sex: Female
  Weight: 92.07 kg

DRUGS (1)
  1. TERBINAFINE TABLETS, DR. REDDY^S [Suspect]
     Active Substance: TERBINAFINE
     Indication: TINEA INFECTION
     Route: 048
     Dates: start: 20201009, end: 20201105

REACTIONS (5)
  - Skin exfoliation [Recovering/Resolving]
  - Rash [Recovering/Resolving]
  - Swelling [Recovering/Resolving]
  - Urticaria [Recovering/Resolving]
  - Erythema [Recovering/Resolving]

NARRATIVE: CASE EVENT DATE: 20201106
